FAERS Safety Report 4544830-4 (Version None)
Quarter: 2004Q4

REPORT INFORMATION
  Report Type: 
  Country: None (occurrence: None)
  Receive Date: 20041230
  Receipt Date: 20041216
  Transmission Date: 20050328
  Serious: Yes (Death, Hospitalization)
  Sender: FDA-Public Use
  Company Number: 2003-BP-04992BP

PATIENT
  Age: 33 Year
  Sex: Female
  Weight: 101.1 kg

DRUGS (4)
  1. VIRAMUNE [Suspect]
     Indication: HIV INFECTION
     Dosage: 400 MG (200 MG, 2 IN 1 D), PO
     Route: 048
     Dates: start: 20030618, end: 20030723
  2. COMBIVIR [Suspect]
     Indication: HIV INFECTION
     Dates: start: 20030618, end: 20030723
  3. IRON [Concomitant]
  4. PRENATAL VITAMINS [Concomitant]

REACTIONS (38)
  - ACUTE FATTY LIVER OF PREGNANCY [None]
  - AMMONIA INCREASED [None]
  - ANTEPARTUM HAEMORRHAGE [None]
  - BLOOD FIBRINOGEN INCREASED [None]
  - BLOOD GLUCOSE DECREASED [None]
  - BLOOD HIV RNA INCREASED [None]
  - BLOOD UREA DECREASED [None]
  - BLOOD URINE PRESENT [None]
  - CAESAREAN SECTION [None]
  - COAGULOPATHY [None]
  - DIALYSIS [None]
  - DISSEMINATED INTRAVASCULAR COAGULATION [None]
  - DIZZINESS [None]
  - DRUG EXPOSURE DURING PREGNANCY [None]
  - GENERAL PHYSICAL HEALTH DETERIORATION [None]
  - HEART RATE INCREASED [None]
  - HEPATIC FAILURE [None]
  - HEPATIC NECROSIS [None]
  - HEPATITIS [None]
  - HEPATOTOXICITY [None]
  - HYPOTENSION [None]
  - INCISION SITE HAEMORRHAGE [None]
  - INDUCED LABOUR [None]
  - INTERNATIONAL NORMALISED RATIO INCREASED [None]
  - MULTI-ORGAN FAILURE [None]
  - OCULAR ICTERUS [None]
  - PNEUMOTHORAX [None]
  - PREMATURE SEPARATION OF PLACENTA [None]
  - PROTEIN URINE PRESENT [None]
  - PROTHROMBIN TIME PROLONGED [None]
  - PULMONARY OEDEMA [None]
  - RASH MACULO-PAPULAR [None]
  - RASH PRURITIC [None]
  - RENAL FAILURE [None]
  - RENAL TUBULAR NECROSIS [None]
  - RESPIRATORY DISTRESS [None]
  - URINE KETONE BODY PRESENT [None]
  - URINE LEUKOCYTE ESTERASE POSITIVE [None]
